FAERS Safety Report 15135337 (Version 1)
Quarter: 2018Q3

REPORT INFORMATION
  Report Type: Spontaneous
  Country: US (occurrence: US)
  Receive Date: 20180712
  Receipt Date: 20180712
  Transmission Date: 20181010
  Serious: No
  Sender: FDA-Public Use
  Company Number: US-009507513-1806USA005386

PATIENT
  Age: 53 Year
  Sex: Female

DRUGS (6)
  1. ZERBAXA [Suspect]
     Active Substance: CEFTOLOZANE SULFATE\TAZOBACTAM SODIUM
     Dosage: 1.5 G, Q8H
     Route: 042
  2. MEROPENEM. [Concomitant]
     Active Substance: MEROPENEM
  3. COLISTIN [Concomitant]
     Active Substance: COLISTIN
  4. TOBRAMYCIN. [Concomitant]
     Active Substance: TOBRAMYCIN
     Route: 055
  5. METRONIDAZOLE. [Concomitant]
     Active Substance: METRONIDAZOLE
  6. TOBRAMYCIN. [Concomitant]
     Active Substance: TOBRAMYCIN
     Dosage: 280 MG (7MG/KG), Q24H
     Route: 042

REACTIONS (1)
  - Off label use [Unknown]
